FAERS Safety Report 17384331 (Version 1)
Quarter: 2020Q1

REPORT INFORMATION
  Report Type: Spontaneous
  Country: US (occurrence: US)
  Receive Date: 20200206
  Receipt Date: 20200206
  Transmission Date: 20200409
  Serious: No
  Sender: FDA-Public Use
  Company Number: US-ABBVIE-19K-163-2968426-00

PATIENT
  Sex: Male
  Weight: 115.77 kg

DRUGS (2)
  1. HUMIRA [Suspect]
     Active Substance: ADALIMUMAB
     Indication: PSORIATIC ARTHROPATHY
     Route: 058
  2. HUMIRA [Suspect]
     Active Substance: ADALIMUMAB
     Route: 058

REACTIONS (3)
  - Cystitis [Recovered/Resolved]
  - Neuropathy peripheral [Not Recovered/Not Resolved]
  - Bladder dilatation [Recovered/Resolved]

NARRATIVE: CASE EVENT DATE: 2019
